FAERS Safety Report 26114670 (Version 2)
Quarter: 2025Q4

REPORT INFORMATION
  Report Type: Other
  Country: EU (occurrence: EU)
  Receive Date: 20251202
  Receipt Date: 20251209
  Transmission Date: 20260117
  Serious: Yes (Hospitalization, Other)
  Sender: AIRGAS
  Company Number: EU-LHC-2025006506

PATIENT
  Age: 25 Year
  Sex: Male

DRUGS (1)
  1. NITROUS OXIDE [Suspect]
     Active Substance: NITROUS OXIDE
     Indication: Substance abuse

REACTIONS (4)
  - Venous thrombosis [Recovering/Resolving]
  - Hyperhomocysteinaemia [Unknown]
  - Vitamin B12 decreased [Unknown]
  - Pulmonary embolism [Recovering/Resolving]
